FAERS Safety Report 6805131-4 (Version None)
Quarter: 2010Q2

REPORT INFORMATION
  Report Type: 
  Country: None (occurrence: None)
  Receive Date: 20100628
  Receipt Date: 20070913
  Transmission Date: 20101027
  Serious: Yes (Other)
  Sender: FDA-Public Use
  Company Number: US-PFIZER INC-2007054556

PATIENT
  Age: 32 Year
  Sex: Female

DRUGS (3)
  1. GEODON [Suspect]
     Indication: BIPOLAR DISORDER
     Route: 048
     Dates: start: 20070606
  2. LAMICTAL [Concomitant]
  3. HALDOL [Concomitant]

REACTIONS (3)
  - ANXIETY [None]
  - DYSTONIA [None]
  - RETCHING [None]
